FAERS Safety Report 9904417 (Version 1)
Quarter: 2014Q1

REPORT INFORMATION
  Report Type: Report from Study
  Country: US (occurrence: US)
  Receive Date: 20140218
  Receipt Date: 20140218
  Transmission Date: 20141002
  Serious: Yes (Hospitalization, Other)
  Sender: FDA-Public Use
  Company Number: US-ROCHE-1345210

PATIENT
  Sex: Male
  Weight: 58.4 kg

DRUGS (12)
  1. SOMATROPIN [Suspect]
     Indication: GROWTH HORMONE DEFICIENCY
     Route: 058
  2. SOMATROPIN [Suspect]
     Route: 058
     Dates: start: 20131112
  3. BACTRIM [Concomitant]
     Route: 048
  4. FLAGYL [Concomitant]
     Route: 048
  5. KEFLEX [Concomitant]
     Route: 048
  6. NEOCATE [Concomitant]
     Route: 048
  7. SEPTRA [Concomitant]
     Route: 048
  8. NEOMYCIN [Concomitant]
     Route: 048
  9. PHYTONADIONE [Concomitant]
     Route: 048
  10. PREDNISONE [Concomitant]
     Route: 048
  11. VITAMIN A [Concomitant]
  12. XIFAXAN [Concomitant]

REACTIONS (13)
  - Malnutrition [Unknown]
  - Diarrhoea [Unknown]
  - Weight decreased [Unknown]
  - Night blindness [Unknown]
  - Breast mass [Unknown]
  - Gynaecomastia [Unknown]
  - Lower extremity mass [Unknown]
  - Inguinal mass [Unknown]
  - Neck mass [Unknown]
  - Cow^s milk intolerance [Unknown]
  - Diarrhoea [Unknown]
  - Vitamin A deficiency [Unknown]
  - Vitamin K deficiency [Unknown]
